FAERS Safety Report 24682294 (Version 1)
Quarter: 2024Q4

REPORT INFORMATION
  Report Type: Spontaneous
  Country: US (occurrence: US)
  Receive Date: 20241130
  Receipt Date: 20241130
  Transmission Date: 20250115
  Serious: Yes (Other)
  Sender: ACCORD
  Company Number: US-MLMSERVICE-20241115-PI259310-00306-1

PATIENT
  Age: 41 Year
  Sex: Male

DRUGS (2)
  1. TACROLIMUS [Suspect]
     Active Substance: TACROLIMUS
     Indication: Immunosuppressant drug therapy
     Dosage: EXTENDED RELEASE
  2. MYCOPHENOLATE MOFETIL [Concomitant]
     Active Substance: MYCOPHENOLATE MOFETIL
     Indication: Immunosuppressant drug therapy

REACTIONS (3)
  - Thrombotic microangiopathy [Recovering/Resolving]
  - Drug level above therapeutic [Recovering/Resolving]
  - Renal transplant failure [Recovering/Resolving]
